FAERS Safety Report 18925431 (Version 8)
Quarter: 2021Q3

REPORT INFORMATION
  Report Type: Spontaneous
  Country: US (occurrence: US)
  Receive Date: 20210222
  Receipt Date: 20210802
  Transmission Date: 20211014
  Serious: No
  Sender: FDA-Public Use
  Company Number: US-BIOGEN-2021BI00979390

PATIENT
  Age: 40 Year
  Sex: Male

DRUGS (4)
  1. VUMERITY [Suspect]
     Active Substance: DIROXIMEL FUMARATE
     Route: 065
     Dates: start: 20210215
  2. VUMERITY [Suspect]
     Active Substance: DIROXIMEL FUMARATE
     Indication: RELAPSING-REMITTING MULTIPLE SCLEROSIS
     Dosage: 231 MG TWICE DAILY FOR 7 DAYS, THEN 462 MG TWICE DAILY THEREAFTER
     Route: 065
     Dates: start: 20210210
  3. VUMERITY [Suspect]
     Active Substance: DIROXIMEL FUMARATE
     Route: 065
     Dates: start: 20210215, end: 20210301
  4. VUMERITY [Suspect]
     Active Substance: DIROXIMEL FUMARATE
     Route: 065
     Dates: start: 202102, end: 202103

REACTIONS (17)
  - Chromaturia [Not Recovered/Not Resolved]
  - Heart rate increased [Unknown]
  - Hyperhidrosis [Unknown]
  - Palpitations [Unknown]
  - Feeling abnormal [Unknown]
  - Multiple sclerosis [Not Recovered/Not Resolved]
  - Anal incontinence [Unknown]
  - Blood glucose increased [Not Recovered/Not Resolved]
  - Anxiety [Unknown]
  - Multiple sclerosis relapse [Recovered/Resolved]
  - Vomiting [Not Recovered/Not Resolved]
  - Diarrhoea [Recovered/Resolved]
  - Ocular icterus [Recovered/Resolved]
  - Nausea [Not Recovered/Not Resolved]
  - Defaecation urgency [Unknown]
  - Pollakiuria [Unknown]
  - Asthenia [Unknown]

NARRATIVE: CASE EVENT DATE: 2021
